FAERS Safety Report 6671083-3 (Version None)
Quarter: 2010Q2

REPORT INFORMATION
  Report Type: 
  Country: None (occurrence: None)
  Receive Date: 20100407
  Receipt Date: 20100324
  Transmission Date: 20101027
  Serious: Yes (Hospitalization)
  Sender: FDA-Public Use
  Company Number: US-WATSON-2010-04233

PATIENT
  Age: 44 Year
  Sex: Female

DRUGS (5)
  1. FENTANYL CITRATE [Suspect]
     Indication: ANALGESIC THERAPY
     Dosage: 100 U/G, SINGLE
     Route: 042
  2. DULOXETINE HYDROCHLORIDE [Suspect]
     Indication: DEPRESSION
     Dosage: UNK
  3. ONDANSETRON [Suspect]
     Indication: NAUSEA
     Dosage: 4 MG, SINGLE
  4. QUETIAPINE [Suspect]
     Indication: DEPRESSION
     Dosage: UNK
  5. LITHIUM [Suspect]
     Indication: DEPRESSION
     Dosage: UNK

REACTIONS (1)
  - SEROTONIN SYNDROME [None]
